FAERS Safety Report 5581982-1 (Version None)
Quarter: 2008Q1

REPORT INFORMATION
  Report Type: 
  Country: None (occurrence: None)
  Receive Date: 20080104
  Receipt Date: 20080103
  Transmission Date: 20080703
  Serious: Yes (Hospitalization)
  Sender: FDA-Public Use
  Company Number: US-BRISTOL-MYERS SQUIBB COMPANY-14029904

PATIENT
  Age: 60 Year
  Sex: Male
  Weight: 75 kg

DRUGS (14)
  1. ERBITUX [Suspect]
     Indication: NASOPHARYNGEAL CANCER
     Dates: start: 20071002
  2. CISPLATIN [Suspect]
     Indication: NASOPHARYNGEAL CANCER
     Dates: start: 20071002
  3. RADIATION THERAPY [Suspect]
     Indication: NASOPHARYNGEAL CANCER
     Dates: start: 20071208
  4. ZOFRAN [Concomitant]
  5. TEGRETOL [Concomitant]
  6. CITALOPRAM HYDROBROMIDE [Concomitant]
  7. SENNA [Concomitant]
  8. ZANTAC [Concomitant]
  9. ATIVAN [Concomitant]
  10. ACYCLOVIR [Concomitant]
  11. FENTANYL TRANSDERMAL SYSTEM [Concomitant]
  12. OXYCODONE HCL [Concomitant]
  13. LEVOTHYROXINE SODIUM [Concomitant]
  14. COMPAZINE [Concomitant]

REACTIONS (2)
  - DYSPHAGIA [None]
  - STOMATITIS [None]
